FAERS Safety Report 19350468 (Version 1)
Quarter: 2021Q2

REPORT INFORMATION
  Report Type: Report from Study
  Country: None (occurrence: GR)
  Receive Date: 20210531
  Receipt Date: 20210531
  Transmission Date: 20210717
  Serious: Yes (Hospitalization)
  Sender: FDA-Public Use
  Company Number: GR-ABBVIE-21K-066-3926725-00

PATIENT
  Age: 64 Year
  Sex: Male
  Weight: 110 kg

DRUGS (3)
  1. DUODOPA [Suspect]
     Active Substance: CARBIDOPA\LEVODOPA
     Indication: PARKINSON^S DISEASE
     Dosage: MORNING DOSE: 7.2 ML; CONTINUOUS RATE: 2.9 ML/H; EXTRA DOSE: 1.8 ML
     Route: 050
     Dates: start: 20170222
  2. DUODOPA [Suspect]
     Active Substance: CARBIDOPA\LEVODOPA
  3. TRITTICO [Concomitant]
     Active Substance: TRAZODONE HYDROCHLORIDE
     Indication: PRODUCT USED FOR UNKNOWN INDICATION
     Route: 048

REACTIONS (1)
  - Stem cell transplant [Unknown]

NARRATIVE: CASE EVENT DATE: 2021
